FAERS Safety Report 11422275 (Version 2)
Quarter: 2015Q3

REPORT INFORMATION
  Report Type: Spontaneous
  Country: US (occurrence: US)
  Receive Date: 20150827
  Receipt Date: 20150902
  Transmission Date: 20151125
  Serious: No
  Sender: FDA-Public Use
  Company Number: US-TEVA-589550ACC

PATIENT
  Sex: Female
  Weight: 84.44 kg

DRUGS (1)
  1. PARAGARD T 380A [Suspect]
     Active Substance: COPPER
     Indication: CONTRACEPTION
     Route: 015
     Dates: start: 20150520, end: 20150817

REACTIONS (3)
  - Exposure during breast feeding [Unknown]
  - Muscle spasms [Recovered/Resolved]
  - Metrorrhagia [Recovered/Resolved]
